FAERS Safety Report 8854930 (Version 1)
Quarter: 2012Q4

REPORT INFORMATION
  Report Type: Report from Study
  Country: CA (occurrence: CA)
  Receive Date: 20121023
  Receipt Date: 20121023
  Transmission Date: 20130627
  Serious: Yes (Disabling, Other)
  Sender: FDA-Public Use
  Company Number: CA-JNJFOC-20121007392

PATIENT
  Sex: Female
  Weight: 137.9 kg

DRUGS (15)
  1. REMICADE [Suspect]
     Indication: CROHN^S DISEASE
     Dosage: at 0, 2 and 6 weeks, followed by maintenance dose
     Route: 042
     Dates: start: 201009
  2. GLYCINE [Concomitant]
     Route: 065
  3. GLYBURIDE [Concomitant]
     Route: 065
  4. PANTOPRAZOLE [Concomitant]
     Route: 065
  5. HYZAAR [Concomitant]
     Route: 065
  6. ORTHO TRI-CYCLEN LO [Concomitant]
     Route: 065
  7. NAPROXEN [Concomitant]
     Route: 065
  8. HUMULIN N [Concomitant]
     Route: 065
  9. CIPRALEX [Concomitant]
     Route: 065
  10. ZOPICLONE [Concomitant]
     Route: 065
  11. LEVOTHYROXINE [Concomitant]
     Route: 065
  12. CELEBREX [Concomitant]
     Route: 065
  13. NORTRIPTYLINE [Concomitant]
     Route: 065
  14. FENTANYL [Concomitant]
     Route: 065
  15. HUMULIN R [Concomitant]
     Route: 065

REACTIONS (2)
  - Decubitus ulcer [Not Recovered/Not Resolved]
  - Hyperkeratosis [Not Recovered/Not Resolved]
